FAERS Safety Report 9125091 (Version 1)
Quarter: 2013Q1

REPORT INFORMATION
  Report Type: Spontaneous
  Country: US (occurrence: US)
  Receive Date: 20130227
  Receipt Date: 20130227
  Transmission Date: 20140127
  Serious: Yes (Other)
  Sender: FDA-Public Use
  Company Number: PHHY2013US011683

PATIENT
  Sex: Female

DRUGS (4)
  1. METOPROLOL [Suspect]
     Indication: BLOOD PRESSURE ABNORMAL
     Dosage: 50 MG, BID
     Route: 048
  2. LISINOPRIL [Suspect]
     Dosage: 1 DF, UNK
  3. QUINAPRIL [Suspect]
     Indication: HYPERTENSION
     Dosage: 10 MG, QD
     Route: 048
     Dates: start: 20121216, end: 20121230
  4. AMLODIPINE [Suspect]
     Dosage: 1 DF, UNK

REACTIONS (4)
  - Oesophageal stenosis [Not Recovered/Not Resolved]
  - Cough [Not Recovered/Not Resolved]
  - Orthopnoea [Unknown]
  - Insomnia [Unknown]
